FAERS Safety Report 6289227-4 (Version None)
Quarter: 2009Q3

REPORT INFORMATION
  Report Type: 
  Country: None (occurrence: None)
  Receive Date: 20090729
  Receipt Date: 20090729
  Transmission Date: 20100115
  Serious: Yes (Other)
  Sender: FDA-Public Use
  Company Number: None

PATIENT
  Age: 60 Year
  Sex: Male
  Weight: 74.8435 kg

DRUGS (1)
  1. MOVIPREP [Suspect]
     Indication: BOWEL PREPARATION
     Dosage: 1 LITER TWICE PO
     Route: 048
     Dates: start: 20090724, end: 20090724

REACTIONS (2)
  - PRURITUS [None]
  - RASH MACULAR [None]
